FAERS Safety Report 7255635-8 (Version None)
Quarter: 2011Q1

REPORT INFORMATION
  Report Type: 
  Country: None (occurrence: None)
  Receive Date: 20110129
  Receipt Date: 20100823
  Transmission Date: 20110831
  Serious: No
  Sender: FDA-Public Use
  Company Number: US-ABBOTT-10P-163-0666905-00

PATIENT
  Sex: Female
  Weight: 147.55 kg

DRUGS (5)
  1. HUMIRA [Suspect]
     Dosage: OVER 1 YEAR ON MEDICATION, BEFORE CHRISTMAS TIME
     Route: 058
  2. IBUPROFEN [Concomitant]
     Indication: PRODUCT USED FOR UNKNOWN INDICATION
  3. HUMIRA [Suspect]
     Indication: RHEUMATOID ARTHRITIS
     Route: 058
  4. OMEPRAZOLE [Concomitant]
     Indication: GASTROOESOPHAGEAL REFLUX DISEASE
  5. DARVOCET-N 100 [Concomitant]
     Indication: PAIN

REACTIONS (6)
  - PSORIASIS [None]
  - PRURITUS [None]
  - RASH PAPULAR [None]
  - DRY SKIN [None]
  - SCAB [None]
  - HAEMORRHAGE [None]
